FAERS Safety Report 7071439-3 (Version None)
Quarter: 2010Q4

REPORT INFORMATION
  Report Type: 
  Country: None (occurrence: None)
  Receive Date: 20101029
  Receipt Date: 20090901
  Transmission Date: 20110411
  Serious: No
  Sender: FDA-Public Use
  Company Number: A0805377A

PATIENT
  Age: 91 Year
  Sex: Male

DRUGS (5)
  1. ADVAIR DISKUS 100/50 [Suspect]
     Indication: CHRONIC OBSTRUCTIVE PULMONARY DISEASE
     Dosage: 1PUFF TWICE PER DAY
     Route: 055
     Dates: start: 20090801, end: 20090801
  2. COREG [Concomitant]
  3. DIURETIC [Concomitant]
  4. VITAMINS [Concomitant]
  5. OXYGEN [Concomitant]

REACTIONS (2)
  - FOREIGN BODY [None]
  - THROAT TIGHTNESS [None]
